FAERS Safety Report 5429602-0 (Version None)
Quarter: 2007Q3

REPORT INFORMATION
  Report Type: 
  Country: None (occurrence: None)
  Receive Date: 20070829
  Receipt Date: 20070822
  Transmission Date: 20080115
  Serious: Yes (Other)
  Sender: FDA-Public Use
  Company Number: US-ELI_LILLY_AND_COMPANY-US200708000094

PATIENT
  Age: 59 Year
  Sex: Male

DRUGS (9)
  1. HUMATROPE [Suspect]
     Indication: PITUITARY TUMOUR
     Dosage: UNK, UNKNOWN
     Dates: start: 20020801
  2. DILTIAZEM [Concomitant]
     Indication: ANGINA PECTORIS
     Dosage: 240 MG, UNKNOWN
     Route: 048
  3. CYMBALTA [Concomitant]
     Indication: DEPRESSION
     Dosage: 60 MG, UNKNOWN
     Route: 048
     Dates: start: 20041006
  4. ASPIRIN [Concomitant]
     Indication: PROPHYLAXIS
     Dosage: 325 MG, UNKNOWN
     Route: 048
  5. LEVOTHYROXINE SODIUM [Concomitant]
     Indication: HYPOTHYROIDISM
     Dosage: 50 UG, UNKNOWN
     Route: 048
  6. CLONAZEPAM [Concomitant]
     Indication: ANXIETY
     Dosage: 1 MG, UNKNOWN
     Route: 048
  7. NIACIN [Concomitant]
     Indication: PROPHYLAXIS
     Dosage: 250 MG, UNKNOWN
     Route: 048
  8. ZOLPIDEM TARTRATE [Concomitant]
     Indication: INSOMNIA
     Dosage: 10 MG, UNKNOWN
     Route: 048
  9. DEPO-TESTOSTERONE [Concomitant]
     Indication: HYPOGONADISM MALE
     Dosage: 100 MG, UNKNOWN
     Route: 030
     Dates: start: 20020701

REACTIONS (2)
  - PITUITARY TUMOUR RECURRENT [None]
  - VISUAL DISTURBANCE [None]
